FAERS Safety Report 4691183-7 (Version None)
Quarter: 2005Q2

REPORT INFORMATION
  Report Type: 
  Country: None (occurrence: None)
  Receive Date: 20050615
  Receipt Date: 20050418
  Transmission Date: 20051028
  Serious: Yes (Death, Life-Threatening, Hospitalization)
  Sender: FDA-Public Use
  Company Number: FR-AMGEN-UK127772

PATIENT
  Age: 74 Year
  Sex: Female

DRUGS (11)
  1. KINERET [Suspect]
     Indication: RHEUMATOID ARTHRITIS
     Route: 058
     Dates: start: 20041019, end: 20050314
  2. CORTANCYL [Suspect]
     Route: 048
     Dates: start: 19990615, end: 20050314
  3. ACELOFENAC [Suspect]
     Route: 048
     Dates: start: 20040715, end: 20050314
  4. ZOCOR [Concomitant]
     Route: 065
     Dates: end: 20050314
  5. FOSAMAX [Concomitant]
     Route: 065
     Dates: end: 20050314
  6. PARACETAMOL/ CAFFEINE [Concomitant]
     Route: 065
     Dates: end: 20050314
  7. DEXTROPROPOXYPHENE [Concomitant]
     Route: 065
     Dates: end: 20050314
  8. CACIT [Concomitant]
     Route: 065
  9. OMEPRAZOLE [Concomitant]
     Route: 065
  10. CITALOPRAM [Concomitant]
     Route: 065
  11. HYDROCORTISONE [Concomitant]
     Dates: start: 20050403

REACTIONS (17)
  - ACUTE RESPIRATORY DISTRESS SYNDROME [None]
  - CEREBROVASCULAR DISORDER [None]
  - HAEMODIALYSIS [None]
  - HAEMODYNAMIC INSTABILITY [None]
  - INFLAMMATION [None]
  - ISCHAEMIC HEPATITIS [None]
  - LARGE INTESTINE PERFORATION [None]
  - LEUKOPENIA [None]
  - LOSS OF CONSCIOUSNESS [None]
  - NEUTROPENIA [None]
  - OLIGURIA [None]
  - OSTEOPOROTIC FRACTURE [None]
  - PERITONITIS [None]
  - RENAL FAILURE [None]
  - RESPIRATORY DISORDER [None]
  - SEPTIC SHOCK [None]
  - SHOCK [None]
